FAERS Safety Report 13980628 (Version 1)
Quarter: 2017Q3

REPORT INFORMATION
  Report Type: Spontaneous
  Country: US (occurrence: US)
  Receive Date: 20170918
  Receipt Date: 20170918
  Transmission Date: 20171128
  Serious: No
  Sender: FDA-Public Use
  Company Number: US-B.I. PHARMACEUTICALS,INC./RIDGEFIELD-2017-BI-049431

PATIENT
  Age: 57 Year
  Sex: Male
  Weight: 98 kg

DRUGS (6)
  1. TRADJENTA [Concomitant]
     Active Substance: LINAGLIPTIN
     Indication: TYPE 2 DIABETES MELLITUS
     Dosage: FORM STRENGTH: 5MG; FORMULATION: TABLET
     Route: 048
  2. METFORMIN [Concomitant]
     Active Substance: METFORMIN HYDROCHLORIDE
     Indication: DIABETES MELLITUS
     Dosage: FORM STRENGTH: 750MG; FORMULATION: TABLET
     Route: 048
  3. LIPOFEN [Concomitant]
     Active Substance: FENOFIBRATE
     Indication: HYPERTENSION
     Dosage: FORM STRENGTH: 150MG; FORMULATION: TABLET
     Route: 048
  4. OLMESART MEDOX [Concomitant]
     Indication: BLOOD CHOLESTEROL INCREASED
     Dosage: FORM STRENGTH: 20MG; FORMULATION: TABLET
     Route: 048
  5. OMEPRAZOLE. [Concomitant]
     Active Substance: OMEPRAZOLE
     Indication: DYSPEPSIA
     Dosage: FORM STRENGTH: 20MG; FORMULATION: TABLET
     Route: 048
  6. JARDIANCE [Suspect]
     Active Substance: EMPAGLIFLOZIN
     Indication: TYPE 2 DIABETES MELLITUS
     Dosage: ACTION(S) TAKEN WITH PRODUCT: DOSE NOT CHANGED
     Route: 048
     Dates: start: 20170707

REACTIONS (1)
  - Weight decreased [Not Recovered/Not Resolved]

NARRATIVE: CASE EVENT DATE: 20170707
